FAERS Safety Report 14079090 (Version 1)
Quarter: 2017Q4

REPORT INFORMATION
  Report Type: Spontaneous
  Country: CZ (occurrence: CZ)
  Receive Date: 20171012
  Receipt Date: 20171012
  Transmission Date: 20180321
  Serious: Yes (Hospitalization)
  Sender: FDA-Public Use
  Company Number: CZ-BAYER-2017-193385

PATIENT
  Age: 36 Year
  Sex: Female

DRUGS (1)
  1. MOXIFLOXACIN ORAL [Suspect]
     Active Substance: MOXIFLOXACIN
     Indication: SINUSITIS
     Dosage: 400 MG, UNK
     Dates: start: 20030424, end: 20030425

REACTIONS (8)
  - Anaphylactic shock [Recovered/Resolved]
  - Vertigo [None]
  - Auditory disorder [None]
  - Hyperacusis [None]
  - Hypertension [Recovered/Resolved]
  - Ototoxicity [Recovered/Resolved]
  - Paraesthesia [Recovered/Resolved]
  - Balance disorder [Not Recovered/Not Resolved]

NARRATIVE: CASE EVENT DATE: 20030425
